FAERS Safety Report 13519900 (Version 7)
Quarter: 2017Q4

REPORT INFORMATION
  Report Type: Spontaneous
  Country: AR (occurrence: AR)
  Receive Date: 20170506
  Receipt Date: 20171128
  Transmission Date: 20180320
  Serious: Yes (Other)
  Sender: FDA-Public Use
  Company Number: AR-AMGEN-ARGSP2017051972

PATIENT
  Age: 46 Year
  Sex: Female

DRUGS (1)
  1. ENBREL [Suspect]
     Active Substance: ETANERCEPT
     Indication: RHEUMATOID ARTHRITIS
     Dosage: 50 MG, WEEKLY
     Route: 065
     Dates: start: 20140715

REACTIONS (10)
  - Limb injury [Recovering/Resolving]
  - Nephrolithiasis [Recovering/Resolving]
  - Wound infection [Not Recovered/Not Resolved]
  - Accident [Recovering/Resolving]
  - Fall [Recovering/Resolving]
  - Lower limb fracture [Recovering/Resolving]
  - Skin ulcer [Recovering/Resolving]
  - Impaired healing [Recovering/Resolving]
  - Malaise [Unknown]
  - Decreased immune responsiveness [Recovering/Resolving]

NARRATIVE: CASE EVENT DATE: 201701
